FAERS Safety Report 9501466 (Version 1)
Quarter: 2013Q3

REPORT INFORMATION
  Report Type: Spontaneous
  Country: CH (occurrence: CH)
  Receive Date: 20130905
  Receipt Date: 20130905
  Transmission Date: 20140515
  Serious: Yes (Hospitalization)
  Sender: FDA-Public Use
  Company Number: CH-GLAXOSMITHKLINE-B0919831A

PATIENT
  Age: 56 Year
  Sex: Male

DRUGS (6)
  1. ZOFRAN [Suspect]
     Indication: NAUSEA
     Route: 042
     Dates: start: 20130805, end: 20130805
  2. VINORELBINE [Suspect]
     Indication: BRONCHIAL CARCINOMA
     Dosage: 54MG WEEKLY
     Route: 042
     Dates: start: 20130805, end: 20130805
  3. CISPLATIN [Suspect]
     Indication: BRONCHIAL CARCINOMA
     Route: 042
     Dates: start: 20130729, end: 20130729
  4. AGOPTON [Concomitant]
     Indication: GASTROOESOPHAGEAL REFLUX DISEASE
     Dosage: 15MG PER DAY
     Route: 048
  5. SOTALOL [Concomitant]
     Indication: ARRHYTHMIA SUPRAVENTRICULAR
     Dosage: 80MG THREE TIMES PER DAY
     Route: 048
     Dates: start: 20130805
  6. ASPIRIN [Concomitant]
     Indication: ARRHYTHMIA SUPRAVENTRICULAR
     Dosage: 100MG PER DAY
     Route: 048

REACTIONS (1)
  - Myocardial infarction [Recovering/Resolving]
